FAERS Safety Report 18239194 (Version 1)
Quarter: 2020Q3

REPORT INFORMATION
  Report Type: Spontaneous
  Country: CA (occurrence: CA)
  Receive Date: 20200907
  Receipt Date: 20200907
  Transmission Date: 20201103
  Serious: Yes (Other)
  Sender: FDA-Public Use
  Company Number: CA-BRISTOL-MYERS SQUIBB COMPANY-BMS-2020-071509

PATIENT
  Age: 86 Year
  Sex: Male
  Weight: 74.83 kg

DRUGS (1)
  1. ELIQUIS [Suspect]
     Active Substance: APIXABAN
     Indication: CEREBROVASCULAR ACCIDENT PROPHYLAXIS
     Dosage: 2.5 MG IN THE MORNING AND 5 MG IN THE EVENING, BID
     Route: 065

REACTIONS (4)
  - Off label use [Unknown]
  - Skin laceration [Unknown]
  - Traumatic haemorrhage [Unknown]
  - Skin haemorrhage [Unknown]

NARRATIVE: CASE EVENT DATE: 202007
